FAERS Safety Report 13307647 (Version 1)
Quarter: 2017Q1

REPORT INFORMATION
  Report Type: Report from Study
  Country: None (occurrence: DE)
  Receive Date: 20170308
  Receipt Date: 20170308
  Transmission Date: 20170428
  Serious: Yes (Hospitalization)
  Sender: FDA-Public Use
  Company Number: DE-ABBVIE-16P-062-1750091-00

PATIENT
  Age: 70 Year
  Sex: Male

DRUGS (3)
  1. TROSPIUMCHLORIDE (SPASMEX) [Concomitant]
     Indication: PRODUCT USED FOR UNKNOWN INDICATION
  2. QUETIAPINE (SEROQUEL) [Concomitant]
     Indication: PRODUCT USED FOR UNKNOWN INDICATION
  3. DUODOPA [Suspect]
     Active Substance: CARBIDOPA\LEVODOPA
     Indication: PARKINSON^S DISEASE
     Dosage: MD: 12.0ML; CRD: 6.3ML/H; CRN: 6.3ML/H; ED: 4.5ML
     Route: 050
     Dates: start: 20160518

REACTIONS (4)
  - Constipation [Not Recovered/Not Resolved]
  - Diarrhoea [Not Recovered/Not Resolved]
  - Flatulence [Unknown]
  - Gastrointestinal bacterial infection [Unknown]

NARRATIVE: CASE EVENT DATE: 201608
